FAERS Safety Report 7808816-6 (Version None)
Quarter: 2011Q4

REPORT INFORMATION
  Report Type: 
  Country: None (occurrence: None)
  Receive Date: 20111012
  Receipt Date: 20111003
  Transmission Date: 20120403
  Serious: Yes (Hospitalization, Disabling, Other)
  Sender: FDA-Public Use
  Company Number: PHEH2010US01705

PATIENT
  Sex: Female

DRUGS (22)
  1. DECADRON [Concomitant]
  2. HYDROCHLOROTHIAZIDE [Concomitant]
  3. ATENOLOL [Concomitant]
  4. ZOMETA [Suspect]
  5. NORVASC [Concomitant]
  6. LASIX [Concomitant]
     Dosage: 40 MG, QD
  7. ROCALTROL [Concomitant]
     Dosage: 0.25 MG, QD
  8. FISH OIL [Concomitant]
     Dosage: 1000 MG, QID
  9. COLACE [Concomitant]
  10. TOLAZAMIDE [Concomitant]
  11. PERIDEX [Concomitant]
     Dosage: 10 ML, TID
  12. COUMADIN [Concomitant]
  13. ZESTRIL [Concomitant]
  14. LEVAQUIN [Concomitant]
     Dosage: 750 MG, QD
  15. LASIX [Concomitant]
     Dosage: 20 MG, QD
  16. THALIDOMIDE [Concomitant]
     Indication: MULTIPLE MYELOMA
  17. DIAMICRON [Concomitant]
     Dosage: 30 MG, QD
  18. PRAVASTATIN SODIUM [Concomitant]
     Dosage: 20 MG, QD
     Route: 048
  19. AREDIA [Suspect]
     Dosage: 90 MG, QMO
  20. GLUCOPHAGE [Concomitant]
     Dosage: 500 MG, QD
  21. METOPROLOL TARTRATE [Concomitant]
  22. PENICILLIN V POTASSIUM [Concomitant]
     Dosage: 500 MG, Q6H

REACTIONS (37)
  - ORAL DISORDER [None]
  - PNEUMONIA [None]
  - MUSCULAR WEAKNESS [None]
  - HYPERPARATHYROIDISM [None]
  - ANAEMIA [None]
  - PAIN [None]
  - INJURY [None]
  - KYPHOSIS [None]
  - DIVERTICULUM [None]
  - OSTEONECROSIS OF JAW [None]
  - INTERVERTEBRAL DISC COMPRESSION [None]
  - BONE PAIN [None]
  - METABOLIC ACIDOSIS [None]
  - PULMONARY EMBOLISM [None]
  - OSTEOARTHRITIS [None]
  - TACHYCARDIA [None]
  - DYSPNOEA [None]
  - ANHEDONIA [None]
  - HYPERLIPIDAEMIA [None]
  - RENAL FAILURE [None]
  - PROTEINURIA [None]
  - HYPOKALAEMIA [None]
  - ANXIETY [None]
  - INTERVERTEBRAL DISC PROTRUSION [None]
  - TENDERNESS [None]
  - HAEMORRHOIDS [None]
  - DISABILITY [None]
  - OROPHARYNGEAL PAIN [None]
  - NECK PAIN [None]
  - FATIGUE [None]
  - SPINAL OSTEOARTHRITIS [None]
  - OSTEOLYSIS [None]
  - CHEST DISCOMFORT [None]
  - PAIN IN JAW [None]
  - SWELLING [None]
  - NEUROPATHY PERIPHERAL [None]
  - DYSLIPIDAEMIA [None]
